FAERS Safety Report 23233315 (Version 2)
Quarter: 2023Q4

REPORT INFORMATION
  Report Type: Report from Study
  Country: US (occurrence: US)
  Receive Date: 20231128
  Receipt Date: 20231205
  Transmission Date: 20240110
  Serious: Yes (Hospitalization, Other)
  Sender: FDA-Public Use
  Company Number: US-TAKEDA-2023TUS110555

PATIENT
  Age: 3 Year
  Sex: Female
  Weight: 16 kg

DRUGS (13)
  1. TEDUGLUTIDE [Suspect]
     Active Substance: TEDUGLUTIDE
     Indication: Congenital megacolon
     Dosage: 0.03 MILLILITER, QD
     Route: 058
     Dates: start: 20230926, end: 20231122
  2. TEDUGLUTIDE [Suspect]
     Active Substance: TEDUGLUTIDE
     Indication: Congenital megacolon
     Dosage: 0.03 MILLILITER, QD
     Route: 058
     Dates: start: 20230926, end: 20231122
  3. TEDUGLUTIDE [Suspect]
     Active Substance: TEDUGLUTIDE
     Indication: Congenital megacolon
     Dosage: 0.03 MILLILITER, QD
     Route: 058
     Dates: start: 20230926, end: 20231122
  4. TEDUGLUTIDE [Suspect]
     Active Substance: TEDUGLUTIDE
     Indication: Congenital megacolon
     Dosage: 0.03 MILLILITER, QD
     Route: 058
     Dates: start: 20230926, end: 20231122
  5. TEDUGLUTIDE [Suspect]
     Active Substance: TEDUGLUTIDE
     Indication: Short-bowel syndrome
  6. TEDUGLUTIDE [Suspect]
     Active Substance: TEDUGLUTIDE
     Indication: Short-bowel syndrome
  7. TEDUGLUTIDE [Suspect]
     Active Substance: TEDUGLUTIDE
     Indication: Short-bowel syndrome
  8. TEDUGLUTIDE [Suspect]
     Active Substance: TEDUGLUTIDE
     Indication: Short-bowel syndrome
  9. TPN [Concomitant]
     Active Substance: AMINO ACIDS\DEXTROSE\ELECTROLYTES NOS\SOYBEAN OIL
     Dosage: UNK
  10. CYPROHEPTADINE [Concomitant]
     Active Substance: CYPROHEPTADINE
     Indication: Gastrointestinal disorder
     Dosage: 1 MILLIGRAM
     Dates: start: 20230519
  11. ERYTHROMYCIN [Concomitant]
     Active Substance: ERYTHROMYCIN
     Indication: Gastrointestinal motility disorder
     Dosage: 40 MILLIGRAM
     Dates: start: 20230810
  12. PENTAMIDINE [Concomitant]
     Active Substance: PENTAMIDINE
     Dosage: UNK
  13. RIFAXIMIN [Concomitant]
     Active Substance: RIFAXIMIN
     Indication: Gastrointestinal bacterial overgrowth
     Dosage: 225 DOSAGE FORM, QD
     Dates: start: 20231031

REACTIONS (7)
  - Pancreatitis [Recovering/Resolving]
  - Chronic kidney disease [Unknown]
  - Cholelithiasis [Unknown]
  - Injection site bruising [Unknown]
  - Flatulence [Unknown]
  - Abdominal distension [Unknown]
  - Product use in unapproved indication [Unknown]

NARRATIVE: CASE EVENT DATE: 20231121
